FAERS Safety Report 10550312 (Version 3)
Quarter: 2015Q3

REPORT INFORMATION
  Report Type: Spontaneous
  Country: TR (occurrence: TR)
  Receive Date: 20141029
  Receipt Date: 20150803
  Transmission Date: 20151125
  Serious: Yes (Death, Hospitalization, Other)
  Sender: FDA-Public Use
  Company Number: TR-TAKEDA-2014TJP014933

PATIENT
  Age: 43 Year
  Sex: Female

DRUGS (1)
  1. LANSOPRAZOLE. [Suspect]
     Active Substance: LANSOPRAZOLE
     Indication: DYSPEPSIA
     Dosage: 30 MG, ONCE
     Route: 048

REACTIONS (14)
  - Respiratory arrest [Fatal]
  - Hypersensitivity [Fatal]
  - Anaphylactic shock [Fatal]
  - Loss of consciousness [Fatal]
  - Brain oedema [Fatal]
  - Rash generalised [Fatal]
  - Periorbital oedema [Fatal]
  - Metabolic acidosis [Fatal]
  - Hepatic enzyme increased [Fatal]
  - Lactic acidosis [Fatal]
  - Hypoxia [Fatal]
  - Cardiac arrest [Fatal]
  - Multi-organ failure [Fatal]
  - Oliguria [Fatal]
